FAERS Safety Report 10785538 (Version 2)
Quarter: 2015Q1

REPORT INFORMATION
  Report Type: Spontaneous
  Country: FR (occurrence: None)
  Receive Date: 20150209
  Receipt Date: 20150209
  Transmission Date: 20150721
  Serious: No
  Sender: FDA-Public Use
  Company Number: FR2015GSK009094

PATIENT
  Age: 86 Year
  Sex: Female

DRUGS (2)
  1. DEROXAT [Suspect]
     Active Substance: PAROXETINE HYDROCHLORIDE
     Route: 048
     Dates: start: 201501
  2. INSULIN [Concomitant]
     Active Substance: INSULIN NOS

REACTIONS (2)
  - Diabetes mellitus inadequate control [None]
  - Hyperprolactinaemia [None]

NARRATIVE: CASE EVENT DATE: 201501
